FAERS Safety Report 7438463-X (Version None)
Quarter: 2011Q2

REPORT INFORMATION
  Report Type: 
  Country: None (occurrence: None)
  Receive Date: 20110426
  Receipt Date: 20110420
  Transmission Date: 20111010
  Serious: Yes (Hospitalization)
  Sender: FDA-Public Use
  Company Number: GB-PFIZER INC-2010151590

PATIENT
  Age: 75 Year
  Sex: Female
  Weight: 89.5 kg

DRUGS (11)
  1. THYROXIN [Concomitant]
     Indication: PRIMARY HYPOTHYROIDISM
  2. LOSARTAN [Concomitant]
     Indication: HYPERTENSION
     Dosage: 50 MG, DAILY
     Dates: start: 20050330
  3. DIHYDROCODEINE [Concomitant]
     Dosage: 30 MG, AS NEEDED
     Dates: start: 19980810
  4. SOMATROPIN [Suspect]
     Indication: HYPOPITUITARISM
     Dosage: 0.2 MG, 1X/DAY, 7 INJECTIONS A WEEK
     Route: 058
     Dates: start: 20050323, end: 20090325
  5. THYROXIN [Concomitant]
     Indication: BLOOD THYROID STIMULATING HORMONE DECREASED
     Dosage: 75 UG, DAILY
     Dates: start: 19970210
  6. SPIRONOLACTONE [Concomitant]
     Indication: DIURETIC THERAPY
     Dosage: 25 MG, DALLY
     Dates: start: 20050824
  7. ACETYLSALICYLIC ACID [Concomitant]
     Indication: CORONARY ARTERY DISEASE
     Dosage: 75 MG, DAILY
     Dates: start: 20050330
  8. TIMOPTOL [Concomitant]
     Indication: GLAUCOMA
     Dosage: 1 DF, UNK
     Dates: start: 19981118
  9. METFORMIN [Concomitant]
     Indication: DIABETES MELLITUS
     Dosage: 500 MG, DAILY
     Dates: start: 20050330
  10. DIGOXIN [Concomitant]
     Dosage: 125 UG, DAILY
     Dates: start: 20050330
  11. AMLODIPINE [Concomitant]
     Indication: HYPOTENSION
     Dosage: 5 MG, DAILY
     Dates: start: 20050330

REACTIONS (1)
  - PELVIC MASS [None]
